FAERS Safety Report 7108108-7 (Version None)
Quarter: 2010Q4

REPORT INFORMATION
  Report Type: 
  Country: None (occurrence: None)
  Receive Date: 20101115
  Receipt Date: 20101115
  Transmission Date: 20110411
  Serious: Yes (Life-Threatening, Hospitalization, Disabling)
  Sender: FDA-Public Use
  Company Number: None

PATIENT
  Age: 42 Year
  Sex: Female
  Weight: 61.2356 kg

DRUGS (1)
  1. MELOXICAM [Suspect]
     Indication: TENDONITIS
     Dosage: 15MG 1 TABLET DAILY
     Dates: start: 20100809

REACTIONS (2)
  - CHEST PAIN [None]
  - DYSPNOEA [None]
